FAERS Safety Report 8434931-2 (Version None)
Quarter: 2012Q2

REPORT INFORMATION
  Report Type: 
  Country: None (occurrence: None)
  Receive Date: 20120614
  Receipt Date: 20120607
  Transmission Date: 20120825
  Serious: No
  Sender: FDA-Public Use
  Company Number: US-PFIZER INC-2012137592

PATIENT
  Sex: Female

DRUGS (8)
  1. TALWIN [Suspect]
     Dosage: UNK
  2. VIBRAMYCIN [Suspect]
     Dosage: UNK
  3. PERCODAN [Suspect]
     Dosage: UNK
  4. NYSTATIN [Suspect]
     Dosage: UNK
  5. CLONIDINE HCL [Suspect]
     Dosage: UNK
  6. BIAXIN [Suspect]
     Dosage: UNK
  7. DEMEROL [Suspect]
     Dosage: UNK
  8. BEXXAR [Suspect]
     Dosage: UNK

REACTIONS (1)
  - DRUG HYPERSENSITIVITY [None]
